FAERS Safety Report 12351183 (Version 4)
Quarter: 2016Q3

REPORT INFORMATION
  Report Type: Spontaneous
  Country: US (occurrence: US)
  Receive Date: 20160510
  Receipt Date: 20160805
  Transmission Date: 20161109
  Serious: Yes (Other)
  Sender: FDA-Public Use
  Company Number: US-009507513-1605USA002261

PATIENT
  Age: 25 Year
  Sex: Female
  Weight: 98.87 kg

DRUGS (1)
  1. NEXPLANON [Suspect]
     Active Substance: ETONOGESTREL
     Indication: CONTRACEPTION
     Dosage: 1 ROD EVERY THREE YEARS, FIRST IMPLANT
     Route: 058
     Dates: start: 20160225

REACTIONS (6)
  - Palpitations [Recovered/Resolved]
  - Abnormal dreams [Recovered/Resolved]
  - Suicidal ideation [Recovered/Resolved]
  - Headache [Recovered/Resolved]
  - Insomnia [Recovered/Resolved]
  - Surgery [Unknown]

NARRATIVE: CASE EVENT DATE: 2016
